FAERS Safety Report 4775970-2 (Version None)
Quarter: 2005Q3

REPORT INFORMATION
  Report Type: 
  Country: None (occurrence: None)
  Receive Date: 20050914
  Receipt Date: 20050317
  Transmission Date: 20060218
  Serious: Yes (Other)
  Sender: FDA-Public Use
  Company Number: 163-20785-05030476

PATIENT
  Age: 57 Year
  Sex: Male

DRUGS (6)
  1. THALOMID [Suspect]
     Indication: NEUROENDOCRINE CARCINOMA
     Dosage: 100 MG, DAILY, ORAL
     Route: 048
     Dates: start: 20021122, end: 20030724
  2. TEMODAR [Suspect]
     Indication: NEUROENDOCRINE CARCINOMA
     Dosage: 150 MG/M2, FOR 7 DAYS EVERY OTHER WEEK, ORAL
     Route: 048
     Dates: start: 20021122, end: 20030724
  3. COMPAZINE (PROCHLORPERAZINE EDISYLATE) (UNKNOWN) [Concomitant]
  4. ZOFRAN (ONDANSETRON HYDROCHLORIDE) (UNKNOWN) [Concomitant]
  5. SENNA (SENNA) (TABLETS) [Concomitant]
  6. OXYCODONE (OXYCODONE) (UNKNOWN) [Concomitant]

REACTIONS (2)
  - LYMPHOPENIA [None]
  - STOMATITIS [None]
